FAERS Safety Report 7571887-9 (Version None)
Quarter: 2011Q2

REPORT INFORMATION
  Report Type: 
  Country: None (occurrence: None)
  Receive Date: 20110624
  Receipt Date: 20100708
  Transmission Date: 20111010
  Serious: No
  Sender: FDA-Public Use
  Company Number: A0869230A

PATIENT
  Sex: Female

DRUGS (3)
  1. ALBUTEROL SULFATE AUTOHALER [Concomitant]
  2. VERAMYST [Suspect]
     Indication: CHRONIC OBSTRUCTIVE PULMONARY DISEASE
     Dosage: 2SPR PER DAY
     Route: 045
     Dates: start: 20100501
  3. SYMBICORT [Concomitant]

REACTIONS (1)
  - PAIN IN EXTREMITY [None]
